FAERS Safety Report 23846123 (Version 2)
Quarter: 2024Q3

REPORT INFORMATION
  Report Type: Spontaneous
  Country: US (occurrence: None)
  Receive Date: 20240512
  Receipt Date: 20240715
  Transmission Date: 20241017
  Serious: No
  Sender: ASTRAZENECA
  Company Number: 2024A108494

PATIENT
  Sex: Male

DRUGS (1)
  1. BREZTRI [Suspect]
     Active Substance: BUDESONIDE\FORMOTEROL\GLYCOPYRROLATE
     Dosage: UNKNOWN
     Route: 055

REACTIONS (3)
  - Cough [Unknown]
  - Feeling abnormal [Unknown]
  - Device defective [Unknown]
